FAERS Safety Report 10149888 (Version 2)
Quarter: 2014Q2

REPORT INFORMATION
  Report Type: Spontaneous
  Country: US (occurrence: US)
  Receive Date: 20140502
  Receipt Date: 20140502
  Transmission Date: 20141212
  Serious: Yes (Other)
  Sender: FDA-Public Use
  Company Number: US-SHIONOGI, INC-2014000172

PATIENT
  Sex: Female
  Weight: 75.74 kg

DRUGS (1)
  1. OSPHENA [Suspect]
     Indication: DYSPAREUNIA
     Dosage: 60 MG, QD
     Route: 048
     Dates: start: 20140218, end: 2014

REACTIONS (4)
  - Chest pain [None]
  - Palpitations [Unknown]
  - Hypoaesthesia [None]
  - Paraesthesia [None]
